FAERS Safety Report 8774256 (Version 3)
Quarter: 2018Q1

REPORT INFORMATION
  Report Type: Spontaneous
  Country: US (occurrence: US)
  Receive Date: 20120907
  Receipt Date: 20180104
  Transmission Date: 20180509
  Serious: Yes (Hospitalization, Other)
  Sender: FDA-Public Use
  Company Number: US-009507513-1206USA05069

PATIENT
  Age: 67 Year
  Sex: Female

DRUGS (4)
  1. FOSAMAX [Suspect]
     Active Substance: ALENDRONATE SODIUM
     Indication: PRODUCT USED FOR UNKNOWN INDICATION
     Dosage: UNK UNK, UNKNOWN
     Route: 048
     Dates: start: 2003, end: 2011
  2. ALENDRONATE SODIUM. [Suspect]
     Active Substance: ALENDRONATE SODIUM
     Indication: PRODUCT USED FOR UNKNOWN INDICATION
     Dosage: UNK UNK, UNKNOWN
     Route: 048
     Dates: start: 2003, end: 2011
  3. IBANDRONATE SODIUM. [Suspect]
     Active Substance: IBANDRONATE SODIUM
     Route: 048
     Dates: start: 2003, end: 2011
  4. BONIVA [Suspect]
     Active Substance: IBANDRONATE SODIUM
     Route: 048
     Dates: start: 2003, end: 2011

REACTIONS (13)
  - Dumping syndrome [Unknown]
  - Knee arthroplasty [Unknown]
  - Bone disorder [Unknown]
  - Femur fracture [Unknown]
  - Joint effusion [Unknown]
  - Thrombocytopenia [Unknown]
  - Chondrocalcinosis pyrophosphate [Unknown]
  - Joint dislocation [Recovered/Resolved]
  - Crohn^s disease [Unknown]
  - Colon cancer [Unknown]
  - Anaemia postoperative [Recovered/Resolved]
  - Osteoporosis [Unknown]
  - Hypertension [Unknown]

NARRATIVE: CASE EVENT DATE: 201007
